FAERS Safety Report 4270431-1 (Version None)
Quarter: 2004Q1

REPORT INFORMATION
  Report Type: 
  Country: None (occurrence: None)
  Receive Date: 20040114
  Receipt Date: 20021029
  Transmission Date: 20041129
  Serious: Yes (Hospitalization)
  Sender: FDA-Public Use
  Company Number: US-BRISTOL-MYERS SQUIBB COMPANY-12094637

PATIENT
  Age: 54 Year
  Sex: Female
  Weight: 96 kg

DRUGS (12)
  1. PRAVASTATIN SODIUM [Suspect]
     Dosage: LAST DOSE PRIOR TO EVENT: 29-SEP-2002
     Route: 048
     Dates: start: 20011130
  2. GATIFLOXACIN [Suspect]
     Dosage: LAST DOSE PRIOR TO EVENT: 29-SEP-2002
     Route: 048
     Dates: start: 20011224
  3. ASPIRIN [Concomitant]
     Route: 048
     Dates: start: 20011124
  4. NITROSTAT [Concomitant]
     Route: 048
     Dates: start: 20011124
  5. PLAVIX [Concomitant]
     Route: 048
     Dates: start: 20011124
  6. POTASSIUM [Concomitant]
     Route: 048
  7. GLUCOPHAGE [Concomitant]
     Route: 048
  8. TOPROL-XL [Concomitant]
     Route: 048
     Dates: start: 20011124
  9. DEMADEX [Concomitant]
     Route: 048
  10. ZAROXOLYN [Concomitant]
     Route: 048
  11. ALDACTONE [Concomitant]
     Route: 048
  12. COMBIVENT [Concomitant]

REACTIONS (3)
  - DIABETES MELLITUS INADEQUATE CONTROL [None]
  - DYSPNOEA EXERTIONAL [None]
  - GLYCOSYLATED HAEMOGLOBIN INCREASED [None]
